FAERS Safety Report 14245322 (Version 1)
Quarter: 2017Q4

REPORT INFORMATION
  Report Type: Spontaneous
  Country: US (occurrence: US)
  Receive Date: 20171202
  Receipt Date: 20171202
  Transmission Date: 20180321
  Serious: No
  Sender: FDA-Public Use
  Company Number: US-ENDO PHARMACEUTICALS INC-2017-003869

PATIENT
  Sex: Male

DRUGS (4)
  1. XIAFLEX [Suspect]
     Active Substance: COLLAGENASE CLOSTRIDIUM HISTOLYTICUM
     Indication: PEYRONIE^S DISEASE
     Dosage: UNK CYCLE FOUR, TWO INJECTIONS, UNKNOWN
     Route: 026
  2. XIAFLEX [Suspect]
     Active Substance: COLLAGENASE CLOSTRIDIUM HISTOLYTICUM
     Dosage: UNK CYCLE ONE, TWO INJECTIONS, UNKNOWN
     Route: 026
  3. XIAFLEX [Suspect]
     Active Substance: COLLAGENASE CLOSTRIDIUM HISTOLYTICUM
     Dosage: UNK CYCLE TWO, TWO INJECTIONS, UNKNOWN
     Route: 026
  4. XIAFLEX [Suspect]
     Active Substance: COLLAGENASE CLOSTRIDIUM HISTOLYTICUM
     Dosage: UNK CYCLE THREE, TWO INJECTIONS, UNKNOWN
     Route: 026

REACTIONS (5)
  - Penile discharge [Unknown]
  - Condition aggravated [Unknown]
  - Treatment noncompliance [Unknown]
  - Peyronie^s disease [Unknown]
  - Semen discolouration [Unknown]
